FAERS Safety Report 8534777-0 (Version None)
Quarter: 2012Q3

REPORT INFORMATION
  Report Type: 
  Country: None (occurrence: None)
  Receive Date: 20120724
  Receipt Date: 20120710
  Transmission Date: 20120928
  Serious: No
  Sender: FDA-Public Use
  Company Number: US-ASTRAZENECA-2011SE39144

PATIENT
  Age: 53 Year
  Sex: Male

DRUGS (10)
  1. SEROQUEL [Suspect]
     Route: 048
     Dates: start: 20110618
  2. SEROQUEL [Suspect]
     Route: 048
  3. LEVAMIR [Concomitant]
  4. SEROQUEL [Suspect]
     Indication: BIPOLAR DISORDER
     Route: 048
  5. SEROQUEL [Suspect]
     Dosage: 3 PILLS AT BEDTIME
     Route: 048
  6. ATARAX [Concomitant]
  7. LITHIUM CARBONATE [Concomitant]
  8. SEROQUEL [Suspect]
     Route: 048
  9. SEROQUEL [Suspect]
     Route: 048
  10. NOVOLIN 70/30 [Concomitant]

REACTIONS (6)
  - DYSPNOEA [None]
  - RESTLESSNESS [None]
  - THERAPEUTIC RESPONSE UNEXPECTED [None]
  - NERVOUSNESS [None]
  - BLOOD GLUCOSE DECREASED [None]
  - HYPERGLYCAEMIA [None]
